FAERS Safety Report 4836137-2 (Version None)
Quarter: 2005Q4

REPORT INFORMATION
  Report Type: 
  Country: None (occurrence: None)
  Receive Date: 20051123
  Receipt Date: 20051117
  Transmission Date: 20060501
  Serious: Yes (Hospitalization, Disabling, Other)
  Sender: FDA-Public Use
  Company Number: US-MERCK-0511USA03254

PATIENT
  Age: 49 Year
  Sex: Female
  Weight: 104 kg

DRUGS (10)
  1. LIPITOR [Concomitant]
     Route: 065
  2. DIFLUCAN [Concomitant]
     Route: 065
  3. GEMFIBROZIL [Concomitant]
     Route: 065
  4. DOXYCYCLINE [Concomitant]
     Route: 065
  5. AMITRIPTYLINE HYDROCHLORIDE [Concomitant]
     Route: 065
  6. PROZAC [Concomitant]
     Route: 065
  7. DITROPAN [Concomitant]
     Route: 065
  8. MAGNESIUM (UNSPECIFIED) [Concomitant]
     Route: 065
  9. VIOXX [Suspect]
     Indication: PAIN
     Route: 048
     Dates: start: 20000101
  10. VIOXX [Suspect]
     Indication: ARTHRITIS
     Route: 048
     Dates: start: 20000101

REACTIONS (15)
  - BLADDER DISORDER [None]
  - BURN INFECTION [None]
  - CARDIOVASCULAR DISORDER [None]
  - CATARACT [None]
  - CEREBROVASCULAR ACCIDENT [None]
  - CORONARY ARTERY DISEASE [None]
  - DIABETIC FOOT [None]
  - GLAUCOMA [None]
  - HYPERTENSION [None]
  - INSOMNIA [None]
  - IRRITABLE BOWEL SYNDROME [None]
  - POLYP [None]
  - POLYPECTOMY [None]
  - RHEUMATOID ARTHRITIS [None]
  - URINARY INCONTINENCE [None]
